FAERS Safety Report 17367872 (Version 3)
Quarter: 2020Q1

REPORT INFORMATION
  Report Type: Report from Study
  Country: US (occurrence: US)
  Receive Date: 20200204
  Receipt Date: 20200228
  Transmission Date: 20200409
  Serious: Yes (Hospitalization, Other)
  Sender: FDA-Public Use
  Company Number: US-AMGEN-USASL2019216083

PATIENT
  Age: 72 Year
  Sex: Female

DRUGS (3)
  1. REPATHA [Suspect]
     Active Substance: EVOLOCUMAB
     Indication: HYPERCHOLESTEROLAEMIA
     Dosage: 140 MILLIGRAM, Q2WK
     Route: 065
     Dates: start: 2016
  2. REPATHA [Suspect]
     Active Substance: EVOLOCUMAB
     Dosage: 140 MILLIGRAM, Q2WK
     Route: 065
  3. FLUCONAZOLE. [Suspect]
     Active Substance: FLUCONAZOLE
     Indication: FUNGAL INFECTION
     Dosage: UNK
     Route: 065
     Dates: start: 2018, end: 2018

REACTIONS (12)
  - Injection site mass [Recovered/Resolved]
  - Injection site bruising [Unknown]
  - Fungal infection [Recovered/Resolved]
  - Accidental exposure to product [Unknown]
  - Stevens-Johnson syndrome [Recovered/Resolved]
  - Injection site erythema [Unknown]
  - Device failure [Unknown]
  - Injection site pain [Unknown]
  - Injection site swelling [Unknown]
  - Injection site haemorrhage [Unknown]
  - Fear of injection [Unknown]
  - Device physical property issue [Unknown]

NARRATIVE: CASE EVENT DATE: 2018
